FAERS Safety Report 7265537-9 (Version None)
Quarter: 2011Q1

REPORT INFORMATION
  Report Type: 
  Country: None (occurrence: None)
  Receive Date: 20110131
  Receipt Date: 20110128
  Transmission Date: 20110831
  Serious: Yes (Hospitalization)
  Sender: FDA-Public Use
  Company Number: CO-ROCHE-756020

PATIENT
  Sex: Female

DRUGS (5)
  1. TACROLIMUS [Concomitant]
     Route: 048
  2. PREDNISOLONE [Concomitant]
     Route: 048
  3. OMEPRAZOLE [Concomitant]
     Route: 048
  4. DILTIAZEM [Concomitant]
     Route: 048
  5. CELLCEPT [Suspect]
     Route: 048
     Dates: start: 20060603

REACTIONS (1)
  - TRANSPLANT REJECTION [None]
